FAERS Safety Report 19467192 (Version 1)
Quarter: 2021Q2

REPORT INFORMATION
  Report Type: Spontaneous
  Country: US (occurrence: US)
  Receive Date: 20210625
  Receipt Date: 20210625
  Transmission Date: 20210717
  Serious: No
  Sender: FDA-Public Use
  Company Number: None

PATIENT
  Age: 60 Year
  Sex: Male

DRUGS (12)
  1. SPRYCEL [Suspect]
     Active Substance: DASATINIB
     Indication: CARCINOID TUMOUR
     Route: 048
     Dates: start: 20181129
  2. ONDANSETRON [Concomitant]
     Active Substance: ONDANSETRON
  3. GABAPENTIN. [Concomitant]
     Active Substance: GABAPENTIN
  4. LEVOCETIRIZI [Concomitant]
  5. MONTELUKAST [Concomitant]
     Active Substance: MONTELUKAST SODIUM
  6. FLUTICASONE. [Concomitant]
     Active Substance: FLUTICASONE
  7. FOLIC ACID. [Concomitant]
     Active Substance: FOLIC ACID
  8. TAMSULISON [Concomitant]
  9. TIZANIDINE. [Concomitant]
     Active Substance: TIZANIDINE
  10. ZOLPIDEM ER [Concomitant]
     Active Substance: ZOLPIDEM TARTRATE
  11. FUROSEMIDE. [Concomitant]
     Active Substance: FUROSEMIDE
  12. METOPROL TAR [Concomitant]

REACTIONS (3)
  - Therapy interrupted [None]
  - Illness [None]
  - Foot operation [None]

NARRATIVE: CASE EVENT DATE: 20210624
